FAERS Safety Report 10004648 (Version 2)
Quarter: 2014Q1

REPORT INFORMATION
  Report Type: Spontaneous
  Country: US (occurrence: US)
  Receive Date: 20140312
  Receipt Date: 20140312
  Transmission Date: 20141002
  Serious: No
  Sender: FDA-Public Use
  Company Number: US-INCYTE CORPORATION-2013IN001794

PATIENT
  Sex: Female
  Weight: 65.76 kg

DRUGS (8)
  1. JAKAFI [Suspect]
     Indication: MYELOFIBROSIS
     Dosage: 20 MG, BID
     Route: 048
     Dates: start: 20130509, end: 2013
  2. JAKAFI [Suspect]
     Dosage: 20 MG, QD
     Route: 048
     Dates: start: 20130730, end: 2013
  3. JAKAFI [Suspect]
     Dosage: 20 MG, BID
     Route: 048
     Dates: start: 201306, end: 20130911
  4. PROTONIX DR [Concomitant]
     Dosage: 20 MG, UNK
  5. LANOXIN [Concomitant]
     Dosage: 125 MCG, UNK
  6. ZYRTEC [Concomitant]
     Dosage: 10 MG, UNK
  7. TYLENOL [Concomitant]
     Dosage: 325 MG, UNK
  8. KEPPRA [Concomitant]

REACTIONS (9)
  - Splenomegaly [Unknown]
  - Malaise [Unknown]
  - Pain [Unknown]
  - Feeling cold [Unknown]
  - Nausea [Unknown]
  - Diarrhoea [Unknown]
  - Gastroenteritis viral [Unknown]
  - Blood count abnormal [Unknown]
  - Red blood cell count decreased [Unknown]
